FAERS Safety Report 8074138-4 (Version None)
Quarter: 2011Q4

REPORT INFORMATION
  Report Type: 
  Country: None (occurrence: None)
  Receive Date: 20111221
  Receipt Date: 20110317
  Transmission Date: 20120403
  Serious: Yes (Hospitalization)
  Sender: FDA-Public Use
  Company Number: PHHY2011US22559

PATIENT
  Age: 45 Year
  Sex: Female

DRUGS (12)
  1. PROMETHAZINE HYDROCHLORIDE [Concomitant]
  2. METHADONE HYDROCHLORIDE [Concomitant]
  3. OXYGEN (OXYGEN) [Concomitant]
  4. SPIRONOLACTONE [Concomitant]
  5. BUPROPION HCL [Concomitant]
  6. FOLIC ACID [Concomitant]
  7. IBUPROFEN [Concomitant]
  8. VITAMIN D [Concomitant]
  9. EXJADE [Suspect]
     Indication: SICKLE CELL ANAEMIA
     Dosage: 500 MG, BID, ORAL
     Route: 048
  10. FUROSEMIDE [Concomitant]
  11. HYDROXYUREA [Concomitant]
  12. OXYCODONE HCL [Concomitant]

REACTIONS (11)
  - DYSPNOEA EXERTIONAL [None]
  - CHEST PAIN [None]
  - BLOOD BILIRUBIN INCREASED [None]
  - SICKLE CELL ANAEMIA WITH CRISIS [None]
  - ASTHENIA [None]
  - HYPOXIA [None]
  - BACK PAIN [None]
  - HEADACHE [None]
  - PAIN IN EXTREMITY [None]
  - DECREASED APPETITE [None]
  - GENERALISED OEDEMA [None]
